FAERS Safety Report 6135976-8 (Version None)
Quarter: 2009Q1

REPORT INFORMATION
  Report Type: 
  Country: None (occurrence: None)
  Receive Date: 20090329
  Receipt Date: 20080815
  Transmission Date: 20090719
  Serious: No
  Sender: FDA-Public Use
  Company Number: US-BAUSCH-2008BL003566

PATIENT
  Age: 50 Year
  Sex: Female

DRUGS (2)
  1. LOTEMAX [Suspect]
     Indication: EYE INFLAMMATION
     Route: 047
  2. RESTASIS [Concomitant]
     Indication: KERATOCONJUNCTIVITIS SICCA
     Route: 047

REACTIONS (1)
  - INSOMNIA [None]
